FAERS Safety Report 4852545-8 (Version None)
Quarter: 2005Q4

REPORT INFORMATION
  Report Type: 
  Country: None (occurrence: None)
  Receive Date: 20051130
  Receipt Date: 20050912
  Transmission Date: 20060501
  Serious: No
  Sender: FDA-Public Use
  Company Number: WAES 0510USA08544

PATIENT
  Age: 80 Year
  Sex: Female
  Weight: 50.3493 kg

DRUGS (9)
  1. ZETIA [Suspect]
     Dosage: 10 MG/AM/PO
     Route: 048
     Dates: start: 20050404, end: 20050503
  2. ACTONEL [Concomitant]
  3. ALTACE [Concomitant]
  4. CITRACAL CAPLETS + D [Concomitant]
  5. DILANTIN [Concomitant]
  6. ZOCOR [Concomitant]
  7. FOLIC ACID [Concomitant]
  8. PYRIDOXINE HCL [Concomitant]
  9. XANTHOPHYLL [Concomitant]

REACTIONS (1)
  - MEMORY IMPAIRMENT [None]
